FAERS Safety Report 11088078 (Version 2)
Quarter: 2015Q2

REPORT INFORMATION
  Report Type: Spontaneous
  Country: US (occurrence: US)
  Receive Date: 20150504
  Receipt Date: 20150518
  Transmission Date: 20150821
  Serious: No
  Sender: FDA-Public Use
  Company Number: US-PFIZER INC-2015144169

PATIENT
  Age: 68 Year
  Sex: Female
  Weight: 102 kg

DRUGS (13)
  1. LYRICA [Suspect]
     Active Substance: PREGABALIN
     Indication: DIABETIC NEUROPATHY
     Dosage: 150 MG, 2X/DAY
     Dates: start: 201409
  2. LOSARTAN POTASSIUM. [Concomitant]
     Active Substance: LOSARTAN POTASSIUM
     Indication: RENAL DISORDER
  3. ATENOLOL. [Concomitant]
     Active Substance: ATENOLOL
     Indication: HYPERTENSION
     Dosage: 25 MG, DAILY
  4. LOSARTAN POTASSIUM. [Concomitant]
     Active Substance: LOSARTAN POTASSIUM
     Indication: BLOOD PRESSURE MANAGEMENT
     Dosage: 25 MG, DAILY
  5. METFORMIN [Concomitant]
     Active Substance: METFORMIN HYDROCHLORIDE
     Indication: DIABETES MELLITUS
     Dosage: 1000 MG, 2X/DAY
     Route: 048
  6. LEVOTHYROXINE [Concomitant]
     Active Substance: LEVOTHYROXINE
     Indication: THYROID DISORDER
     Dosage: 1 DF-50 MCG, DAILY
  7. VITAMIN D /00107901/ [Concomitant]
     Active Substance: ERGOCALCIFEROL
     Indication: VITAMIN D DEFICIENCY
     Dosage: 2000 IU, DAILY
  8. BAYER ASPIRIN [Concomitant]
     Active Substance: ASPIRIN
     Dosage: 325 MG, DAILY
  9. VITAMIN B12 /07503801/ [Concomitant]
     Indication: SUPPLEMENTATION THERAPY
     Dosage: 1000 MCG
  10. SPIRONOLACTONE. [Concomitant]
     Active Substance: SPIRONOLACTONE
     Dosage: 25 MG, 3 TIMES A WEEK
  11. NORTRIPTYLINE HCL [Concomitant]
     Active Substance: NORTRIPTYLINE HYDROCHLORIDE
     Indication: ANTIDEPRESSANT THERAPY
     Dosage: 25 MG-1 OR 2 CAPSULES, DAILY AT NIGHT
  12. MORPHINE [Concomitant]
     Active Substance: MORPHINE
     Indication: PAIN
     Dosage: 15 MG IN THE MORNING 30 MG IN THE EVENING
  13. SIMVASTATIN. [Concomitant]
     Active Substance: SIMVASTATIN
     Indication: BLOOD CHOLESTEROL INCREASED
     Dosage: 20 MG, DAILY IN THE EVENING

REACTIONS (5)
  - Dry mouth [Unknown]
  - Pain [Not Recovered/Not Resolved]
  - Dysphagia [Unknown]
  - Panic attack [Unknown]
  - Insomnia [Unknown]

NARRATIVE: CASE EVENT DATE: 201503
